FAERS Safety Report 11259070 (Version 1)
Quarter: 2015Q3

REPORT INFORMATION
  Report Type: Spontaneous
  Country: US (occurrence: US)
  Receive Date: 20150710
  Receipt Date: 20150710
  Transmission Date: 20151125
  Serious: Yes (Death, Hospitalization)
  Sender: FDA-Public Use
  Company Number: US-BAYER-2015-229195

PATIENT
  Age: 78 Year
  Sex: Male

DRUGS (10)
  1. XARELTO [Interacting]
     Active Substance: RIVAROXABAN
     Indication: CEREBROVASCULAR ACCIDENT
     Dosage: 20 MG, UNK
     Route: 048
     Dates: start: 20120309, end: 201306
  2. XARELTO [Interacting]
     Active Substance: RIVAROXABAN
     Indication: ARTERIOSCLEROSIS
  3. XARELTO [Interacting]
     Active Substance: RIVAROXABAN
     Indication: CARDIOVASCULAR DISORDER
  4. ACETYLSALICYLIC ACID({=100 MG) [Suspect]
     Active Substance: ASPIRIN
     Indication: THROMBOSIS PROPHYLAXIS
  5. SPIRONOLACTONE. [Concomitant]
     Active Substance: SPIRONOLACTONE
     Indication: CARDIAC DISORDER
     Dosage: 25 MG, BID
     Route: 048
  6. QUINAPRIL HYDROCHLORIDE. [Concomitant]
     Active Substance: QUINAPRIL HYDROCHLORIDE
     Route: 065
  7. XARELTO [Interacting]
     Active Substance: RIVAROXABAN
     Indication: ARRHYTHMIA
  8. TERAZOSIN [Concomitant]
     Active Substance: TERAZOSIN\TERAZOSIN HYDROCHLORIDE
     Indication: CARDIAC DISORDER
     Dosage: 5 MG, QD
     Route: 048
  9. ACETYLSALICYLIC ACID({=100 MG) [Suspect]
     Active Substance: ASPIRIN
     Indication: ARRHYTHMIA
     Dosage: 81 MG, QD
     Route: 048
  10. COUMADIN [Suspect]
     Active Substance: WARFARIN SODIUM
     Indication: ANTICOAGULANT THERAPY
     Dosage: 5 MG, UNK
     Route: 065
     Dates: start: 20120105, end: 20120128

REACTIONS (3)
  - Haemorrhage intracranial [Fatal]
  - Haematoma [Fatal]
  - Drug ineffective [Unknown]

NARRATIVE: CASE EVENT DATE: 201306
